FAERS Safety Report 24942015 (Version 1)
Quarter: 2025Q1

REPORT INFORMATION
  Report Type: Spontaneous
  Country: NZ (occurrence: NZ)
  Receive Date: 20250207
  Receipt Date: 20250207
  Transmission Date: 20250408
  Serious: Yes (Other)
  Sender: MYLAN
  Company Number: NZ-002147023-PHHY2012NZ031199

PATIENT
  Age: 26 Year
  Sex: Male

DRUGS (5)
  1. CLOZARIL [Suspect]
     Active Substance: CLOZAPINE
     Indication: Schizophrenia
     Dosage: 250 MILLIGRAM, PM (250 MG, NOCTE)
     Route: 048
     Dates: start: 20120215, end: 20120301
  2. RISPERIDONE [Concomitant]
     Active Substance: RISPERIDONE
     Dosage: 5 MILLIGRAM, PM (5 MG, NOCTE)
     Route: 048
     Dates: end: 20120229
  3. ARIPIPRAZOLE [Concomitant]
     Active Substance: ARIPIPRAZOLE
     Dosage: 15 MILLIGRAM, AM (15 MG, MANE)
     Route: 048
  4. CITALOPRAM [Concomitant]
     Active Substance: CITALOPRAM
     Indication: Product used for unknown indication
     Dosage: 40 MILLIGRAM, AM (40 MG, MANE)
     Route: 048
  5. LORAZEPAM [Concomitant]
     Active Substance: LORAZEPAM
     Indication: Product used for unknown indication
     Route: 048

REACTIONS (18)
  - Bicuspid aortic valve [Unknown]
  - Aortic valve incompetence [Unknown]
  - C-reactive protein increased [Unknown]
  - Mitral valve incompetence [Unknown]
  - Myocarditis [Recovered/Resolved]
  - Troponin I increased [Unknown]
  - Chest pain [Unknown]
  - Electrocardiogram ST segment depression [Unknown]
  - Neutrophil count increased [Unknown]
  - Tachyarrhythmia [Unknown]
  - Tachycardia [Unknown]
  - Hypotension [Recovered/Resolved]
  - Malaise [Unknown]
  - Gamma-glutamyltransferase increased [Unknown]
  - Dizziness [Unknown]
  - Fatigue [Unknown]
  - Aspartate aminotransferase increased [Unknown]
  - Alanine aminotransferase increased [Unknown]

NARRATIVE: CASE EVENT DATE: 20120216
